FAERS Safety Report 19173507 (Version 1)
Quarter: 2021Q2

REPORT INFORMATION
  Report Type: Spontaneous
  Country: US (occurrence: US)
  Receive Date: 20210422
  Receipt Date: 20210422
  Transmission Date: 20210717
  Serious: No
  Sender: FDA-Public Use
  Company Number: None

PATIENT
  Age: 47 Year
  Sex: Female
  Weight: 84.6 kg

DRUGS (4)
  1. INJECTAFER [Suspect]
     Active Substance: FERRIC CARBOXYMALTOSE
     Indication: COLITIS ULCERATIVE
     Dosage: ?          OTHER FREQUENCY:ONE TIME INFUSION;?
     Route: 041
     Dates: start: 20210422, end: 20210422
  2. INJECTAFER [Suspect]
     Active Substance: FERRIC CARBOXYMALTOSE
     Indication: HYPOTHYROIDISM
     Dosage: ?          OTHER FREQUENCY:ONE TIME INFUSION;?
     Route: 041
     Dates: start: 20210422, end: 20210422
  3. SOLU?CORTEF 100 MG IVP [Concomitant]
     Dates: start: 20210422, end: 20210422
  4. BENADRYL 25 MG IVP [Concomitant]
     Dates: start: 20210422, end: 20210422

REACTIONS (3)
  - Palpitations [None]
  - Chest discomfort [None]
  - Chills [None]

NARRATIVE: CASE EVENT DATE: 20210422
